FAERS Safety Report 23298438 (Version 1)
Quarter: 2023Q4

REPORT INFORMATION
  Report Type: Spontaneous
  Country: PL (occurrence: PL)
  Receive Date: 20231214
  Receipt Date: 20231214
  Transmission Date: 20240109
  Serious: Yes (Hospitalization, Other)
  Sender: FDA-Public Use
  Company Number: PL-EMA-DD-20180516-khareevhp-100033

PATIENT
  Age: 42 Year
  Sex: Female

DRUGS (8)
  1. AMIODARONE [Suspect]
     Active Substance: AMIODARONE
     Indication: Arrhythmia prophylaxis
     Dosage: DURATION 15 DAYS
     Route: 065
  2. AMIODARONE [Suspect]
     Active Substance: AMIODARONE
     Indication: Dyspnoea
  3. AMOXICILLIN\CLAVULANATE POTASSIUM [Suspect]
     Active Substance: AMOXICILLIN\CLAVULANATE POTASSIUM
     Indication: Antibiotic therapy
     Dosage: DURATION 15 DAYS
     Route: 065
  4. CIPROFLOXACIN [Suspect]
     Active Substance: CIPROFLOXACIN
     Indication: Antibiotic therapy
     Dosage: DURATION 15 DAYS
     Route: 065
  5. DOBUTAMINE [Suspect]
     Active Substance: DOBUTAMINE HYDROCHLORIDE
     Indication: Cardiac failure
     Dosage: DURATION 15 DAYS
     Route: 065
  6. DOBUTAMINE [Suspect]
     Active Substance: DOBUTAMINE HYDROCHLORIDE
     Indication: Dyspnoea
  7. ESCITALOPRAM [Concomitant]
     Active Substance: ESCITALOPRAM OXALATE
     Indication: Product used for unknown indication
     Dosage: UNK
     Route: 065
  8. TRAZODONE [Concomitant]
     Active Substance: TRAZODONE HYDROCHLORIDE
     Indication: Product used for unknown indication
     Dosage: UNK
     Route: 065

REACTIONS (6)
  - Dyspnoea [Unknown]
  - Pulmonary embolism [Unknown]
  - Torsade de pointes [Unknown]
  - Condition aggravated [Unknown]
  - Drug ineffective [Unknown]
  - Pulmonary congestion [Unknown]
